FAERS Safety Report 17568616 (Version 2)
Quarter: 2021Q3

REPORT INFORMATION
  Report Type: Spontaneous
  Country: US (occurrence: US)
  Receive Date: 20200320
  Receipt Date: 20210716
  Transmission Date: 20211014
  Serious: Yes (Other)
  Sender: FDA-Public Use
  Company Number: US-TEVA-2020-US-1209096

PATIENT
  Sex: Female

DRUGS (4)
  1. VALSARTAN AUROBINDO [Suspect]
     Active Substance: VALSARTAN
     Indication: HYPERTENSION
     Dosage: 160MG
     Route: 065
     Dates: start: 20150207, end: 20150709
  2. VALSARTAN/HYDROCHLOROTHIAZIDE AUROBINDO [Suspect]
     Active Substance: HYDROCHLOROTHIAZIDE\VALSARTAN
     Dosage: 65862?573?90
     Route: 065
     Dates: start: 20150530, end: 20151124
  3. VALSARTAN/HYDROCHLOROTHIAZIDE AUROBINDO [Suspect]
     Active Substance: HYDROCHLOROTHIAZIDE\VALSARTAN
     Indication: HYPERTENSION
     Dosage: 160MG/25MG
     Route: 065
     Dates: start: 20140708, end: 20150108
  4. VALSARTAN SOLCO [Suspect]
     Active Substance: VALSARTAN
     Indication: HYPERTENSION
     Dosage: 320MG
     Route: 065
     Dates: start: 20160602, end: 20180731

REACTIONS (2)
  - Non-Hodgkin^s lymphoma [Unknown]
  - Gastric cancer [Unknown]
